FAERS Safety Report 7094415-3 (Version None)
Quarter: 2010Q4

REPORT INFORMATION
  Report Type: 
  Country: None (occurrence: None)
  Receive Date: 20101110
  Receipt Date: 20101105
  Transmission Date: 20110411
  Serious: Yes (Death)
  Sender: FDA-Public Use
  Company Number: JP-GENZYME-THYM-1001342

PATIENT
  Sex: Male
  Weight: 55 kg

DRUGS (7)
  1. THYMOGLOBULIN [Suspect]
     Indication: APLASTIC ANAEMIA
     Dosage: 190 MG/DAY, QD
     Route: 042
     Dates: start: 20091111, end: 20091115
  2. MEROPENEM [Concomitant]
     Indication: INFECTION PROPHYLAXIS
     Dosage: UNK
     Dates: start: 20091111, end: 20091204
  3. CYCLOSPORINE [Concomitant]
     Indication: APLASTIC ANAEMIA
     Dosage: UNK
     Dates: start: 20091111, end: 20091202
  4. SULFAMETHOPRIM [Concomitant]
     Indication: INFECTION PROPHYLAXIS
     Dosage: UNK
     Dates: start: 20091111, end: 20091117
  5. FAMOTIDIN [Concomitant]
     Indication: PROPHYLAXIS AGAINST GASTROINTESTINAL ULCER
     Dosage: UNK
     Dates: start: 20091111, end: 20091118
  6. FILGRASTIM [Concomitant]
     Indication: NEUTROPHIL COUNT DECREASED
     Dosage: UNK
     Dates: start: 20091111, end: 20091127
  7. BLOOD TRANSFUSION, AUXILIARY PRODUCTS [Concomitant]
     Indication: APLASTIC ANAEMIA
     Dosage: UNK
     Dates: start: 20091111, end: 20091207

REACTIONS (3)
  - CANDIDIASIS [None]
  - DISEASE PROGRESSION [None]
  - PSEUDOMONAS INFECTION [None]
